FAERS Safety Report 11240951 (Version 4)
Quarter: 2015Q4

REPORT INFORMATION
  Report Type: Spontaneous
  Country: BR (occurrence: BR)
  Receive Date: 20150706
  Receipt Date: 20151201
  Transmission Date: 20160304
  Serious: Yes (Other)
  Sender: FDA-Public Use
  Company Number: BR-SA-2015SA093096

PATIENT
  Sex: Male

DRUGS (13)
  1. CARVEDILOL. [Concomitant]
     Active Substance: CARVEDILOL
     Indication: CARDIAC DISORDER
  2. LEVEMIR [Concomitant]
     Active Substance: INSULIN DETEMIR
     Indication: DIABETES MELLITUS
  3. CLIKSTAR [Concomitant]
     Active Substance: CLIKSTAR
  4. ALLOPURINOL. [Concomitant]
     Active Substance: ALLOPURINOL
     Indication: GOUT
  5. SIMVASTATIN. [Concomitant]
     Active Substance: SIMVASTATIN
     Indication: CARDIAC DISORDER
  6. CEBRALAT [Concomitant]
     Active Substance: CILOSTAZOL
     Indication: ANGIOPATHY
  7. OMEPRAZOLE. [Concomitant]
     Active Substance: OMEPRAZOLE
     Indication: GASTROOESOPHAGEAL REFLUX DISEASE
     Dosage: IN FASTING
  8. FERROCARBONILA [Concomitant]
  9. ASPIRIN. [Concomitant]
     Active Substance: ASPIRIN
     Indication: ANTICOAGULANT THERAPY
  10. CLOPIDOGREL [Concomitant]
     Active Substance: CLOPIDOGREL BISULFATE
     Indication: ANTICOAGULANT THERAPY
  11. AVODART [Concomitant]
     Active Substance: DUTASTERIDE
     Indication: PROSTATIC DISORDER
  12. APIDRA [Suspect]
     Active Substance: INSULIN GLULISINE
     Indication: TYPE 2 DIABETES MELLITUS
     Route: 058
     Dates: start: 2005
  13. ADDERA D3 [Concomitant]
     Active Substance: CHOLECALCIFEROL
     Indication: VITAMIN D

REACTIONS (5)
  - Fall [Unknown]
  - Gout [Unknown]
  - Cardiac disorder [Unknown]
  - Myocardial infarction [Unknown]
  - Femur fracture [Recovering/Resolving]

NARRATIVE: CASE EVENT DATE: 2008
